FAERS Safety Report 20220818 (Version 1)
Quarter: 2021Q4

REPORT INFORMATION
  Report Type: Spontaneous
  Country: None (occurrence: US)
  Receive Date: 20211223
  Receipt Date: 20211223
  Transmission Date: 20220303
  Serious: Yes (Death)
  Sender: FDA-Public Use
  Company Number: US-Provepharm S.A.S.-2123302

PATIENT
  Age: 59 Year
  Sex: Female

DRUGS (13)
  1. METHYLENE BLUE [Suspect]
     Active Substance: METHYLENE BLUE
     Indication: Capillary leak syndrome
     Route: 065
     Dates: start: 20210205
  2. RINGERS SOLUTION [Concomitant]
     Active Substance: CALCIUM CHLORIDE\POTASSIUM CHLORIDE\SODIUM CHLORIDE
     Route: 065
  3. SODIUM CHLORIDE [Concomitant]
     Active Substance: SODIUM CHLORIDE
     Route: 042
  4. DEXAMETHASONE [Concomitant]
     Active Substance: DEXAMETHASONE
     Route: 065
  5. ENOXAPARIN SODIUM [Concomitant]
     Active Substance: ENOXAPARIN SODIUM
     Route: 065
  6. VANCOMYCIN HYDROCHLORIDE [Concomitant]
     Active Substance: VANCOMYCIN HYDROCHLORIDE
     Route: 065
     Dates: start: 20210204
  7. CEFEPIME [Concomitant]
     Active Substance: CEFEPIME HYDROCHLORIDE
     Route: 065
     Dates: start: 20210204
  8. NOREPINEPHRINE [Concomitant]
     Active Substance: NOREPINEPHRINE
     Route: 065
     Dates: start: 20210204
  9. VASOPRESSIN [Concomitant]
     Active Substance: VASOPRESSIN
     Route: 065
     Dates: start: 20210204
  10. EPINEPHRINE [Concomitant]
     Active Substance: EPINEPHRINE
     Route: 065
     Dates: start: 20210204
  11. HYDROCORTISONE (HYDROCORTISONE ACETATE) [Concomitant]
     Active Substance: HYDROCORTISONE ACETATE
     Route: 065
     Dates: start: 20210204
  12. immunoglobulin [Concomitant]
     Route: 065
     Dates: start: 20210205
  13. ICATIBANT [Concomitant]
     Active Substance: ICATIBANT ACETATE
     Route: 065
     Dates: start: 20210205

REACTIONS (3)
  - Bradycardia [Fatal]
  - Cardiac arrest [Fatal]
  - Off label use [Unknown]

NARRATIVE: CASE EVENT DATE: 20210205
